FAERS Safety Report 9470707 (Version 1)
Quarter: 2013Q3

REPORT INFORMATION
  Report Type: Spontaneous
  Country: US (occurrence: None)
  Receive Date: 20130820
  Receipt Date: 20130820
  Transmission Date: 20140515
  Serious: Yes (Life-Threatening, Hospitalization, Disabling)
  Sender: FDA-Public Use
  Company Number: None

PATIENT
  Age: 84 Year
  Sex: 0

DRUGS (1)
  1. PROLIA [Suspect]
     Indication: BONE DISORDER
     Dates: start: 201112, end: 201206

REACTIONS (11)
  - Injection site pain [None]
  - Pain in extremity [None]
  - Femur fracture [None]
  - Fall [None]
  - Head injury [None]
  - Upper limb fracture [None]
  - Rib fracture [None]
  - Lower limb fracture [None]
  - Concussion [None]
  - Intestinal obstruction [None]
  - Back pain [None]
